FAERS Safety Report 10007203 (Version 4)
Quarter: 2014Q2

REPORT INFORMATION
  Report Type: Report from Study
  Country: US (occurrence: US)
  Receive Date: 20140313
  Receipt Date: 20140515
  Transmission Date: 20141212
  Serious: Yes (Other)
  Sender: FDA-Public Use
  Company Number: US-SANOFI-AVENTIS-2013SA065743

PATIENT
  Age: 33 Year
  Sex: Female

DRUGS (2)
  1. AUBAGIO [Suspect]
     Indication: MULTIPLE SCLEROSIS
     Dosage: FREQUENCY: 1 DAILY NOW QOD
     Route: 048
     Dates: start: 20130501
  2. AUBAGIO [Suspect]
     Indication: MULTIPLE SCLEROSIS
     Dosage: FREQUENCY: 1 DAILY NOW QOD
     Route: 048

REACTIONS (9)
  - Central nervous system lesion [Unknown]
  - Vision blurred [Not Recovered/Not Resolved]
  - Scratch [Not Recovered/Not Resolved]
  - Hypoaesthesia [Recovering/Resolving]
  - Hypoaesthesia [Recovering/Resolving]
  - Alopecia [Unknown]
  - Paraesthesia [Not Recovered/Not Resolved]
  - Pruritus [Not Recovered/Not Resolved]
  - Inappropriate schedule of drug administration [Unknown]
